FAERS Safety Report 21775019 (Version 9)
Quarter: 2024Q4

REPORT INFORMATION
  Report Type: Report from Study
  Country: DE (occurrence: DE)
  Receive Date: 20221225
  Receipt Date: 20241224
  Transmission Date: 20250114
  Serious: Yes (Other)
  Sender: ROCHE
  Company Number: DE-ROCHE-2380184

PATIENT
  Age: 30 Year
  Sex: Female

DRUGS (5)
  1. OCREVUS [Suspect]
     Active Substance: OCRELIZUMAB
     Indication: Relapsing-remitting multiple sclerosis
     Dosage: 600 MG 1 IN 555 DAYS
     Route: 042
     Dates: start: 20190716
  2. OCREVUS [Suspect]
     Active Substance: OCRELIZUMAB
     Route: 042
     Dates: start: 20200907
  3. OCREVUS [Suspect]
     Active Substance: OCRELIZUMAB
     Route: 042
     Dates: start: 20210318
  4. OCREVUS [Suspect]
     Active Substance: OCRELIZUMAB
     Route: 042
     Dates: start: 20210831
  5. LEVOCETIRIZINE DIHYDROCHLORIDE [Concomitant]
     Active Substance: LEVOCETIRIZINE DIHYDROCHLORIDE

REACTIONS (27)
  - Pain in extremity [Recovered/Resolved]
  - Upper respiratory tract infection [Recovered/Resolved]
  - Gastrointestinal infection [Recovered/Resolved]
  - Inflammation [Recovered/Resolved]
  - Cyst [Unknown]
  - Nasopharyngitis [Recovered/Resolved]
  - Maternal exposure during pregnancy [Unknown]
  - Morning sickness [Recovered/Resolved]
  - Back pain [Recovered/Resolved]
  - Magnetic resonance imaging abnormal [Recovered/Resolved]
  - Headache [Recovered/Resolved]
  - Hot flush [Recovered/Resolved]
  - Erythema [Recovered/Resolved]
  - Coronavirus infection [Recovered/Resolved]
  - Arthritis [Recovered/Resolved]
  - Asthma [Recovered/Resolved]
  - Mucosal inflammation [Recovered/Resolved]
  - Blood immunoglobulin G decreased [Recovering/Resolving]
  - B-lymphocyte count decreased [Not Recovered/Not Resolved]
  - Nausea [Recovered/Resolved]
  - Gastrointestinal inflammation [Recovered/Resolved]
  - Maternal exposure before pregnancy [Unknown]
  - Gastrointestinal pain [Recovered/Resolved]
  - Duodenitis [Not Recovered/Not Resolved]
  - Productive cough [Recovered/Resolved]
  - Neuralgia [Recovering/Resolving]
  - COVID-19 [Recovered/Resolved]

NARRATIVE: CASE EVENT DATE: 20190718
